FAERS Safety Report 10748092 (Version 1)
Quarter: 2015Q1

REPORT INFORMATION
  Report Type: Spontaneous
  Country: US (occurrence: None)
  Receive Date: 20150120
  Receipt Date: 20150120
  Transmission Date: 20150721
  Serious: No
  Sender: FDA-Public Use
  Company Number: AEGR001055

PATIENT
  Age: 58 Year
  Sex: Male
  Weight: 93.9 kg

DRUGS (1)
  1. JUXTAPID [Suspect]
     Active Substance: LOMITAPIDE MESYLATE
     Indication: TYPE IIA HYPERLIPIDAEMIA
     Route: 048
     Dates: start: 20140721, end: 20141215

REACTIONS (1)
  - Blood cholesterol increased [None]

NARRATIVE: CASE EVENT DATE: 201412
